FAERS Safety Report 10005432 (Version 1)
Quarter: 2014Q1

REPORT INFORMATION
  Report Type: Spontaneous
  Country: US (occurrence: US)
  Receive Date: 20140312
  Receipt Date: 20140312
  Transmission Date: 20141002
  Serious: No
  Sender: FDA-Public Use
  Company Number: US-ASTRAZENECA-2013SE64965

PATIENT
  Sex: Male

DRUGS (2)
  1. BICALUTAMIDE [Suspect]
     Indication: PROSTATE CANCER
     Dosage: GENERIC
     Route: 048
     Dates: start: 2013, end: 2013
  2. BICALUTAMIDE [Suspect]
     Indication: PROSTATE CANCER
     Dosage: GENERIC
     Route: 048
     Dates: start: 2013, end: 20130816

REACTIONS (10)
  - Muscle twitching [Unknown]
  - Hypoaesthesia oral [Unknown]
  - Headache [Recovered/Resolved]
  - Regurgitation [Recovered/Resolved]
  - Abdominal pain upper [Unknown]
  - Nausea [Recovered/Resolved]
  - Dizziness [Recovered/Resolved]
  - Breast tenderness [Unknown]
  - Hypersensitivity [Recovered/Resolved]
  - Off label use [Unknown]
